FAERS Safety Report 7601502-7 (Version None)
Quarter: 2011Q3

REPORT INFORMATION
  Report Type: 
  Country: None (occurrence: None)
  Receive Date: 20110711
  Receipt Date: 20110701
  Transmission Date: 20111222
  Serious: Yes (Hospitalization, Other)
  Sender: FDA-Public Use
  Company Number: US-PFIZER INC-2011141184

PATIENT
  Sex: Male
  Weight: 71 kg

DRUGS (2)
  1. DOXIL [Suspect]
     Indication: SQUAMOUS CELL CARCINOMA OF SKIN
     Dosage: 25 MG/M2, Q4WEEKS
     Route: 042
     Dates: start: 20100621, end: 20110516
  2. TEMSIROLIMUS [Suspect]
     Indication: SQUAMOUS CELL CARCINOMA OF SKIN
     Dosage: 25 MG, WEEKLY
     Route: 042
     Dates: start: 20100621, end: 20110606

REACTIONS (7)
  - VOMITING [None]
  - HYPOKALAEMIA [None]
  - NAUSEA [None]
  - HYPONATRAEMIA [None]
  - ARRHYTHMIA [None]
  - HYPOTENSION [None]
  - HYPOCALCAEMIA [None]
